FAERS Safety Report 15269146 (Version 1)
Quarter: 2018Q3

REPORT INFORMATION
  Report Type: Spontaneous
  Country: US (occurrence: US)
  Receive Date: 20180813
  Receipt Date: 20180813
  Transmission Date: 20181010
  Serious: Yes (Other)
  Sender: FDA-Public Use
  Company Number: US-AMGEN-USASP2018109304

PATIENT
  Age: 48 Year
  Sex: Female

DRUGS (1)
  1. ENBREL [Suspect]
     Active Substance: ETANERCEPT
     Indication: PSORIASIS
     Dosage: 50 MG, 2 TIMES/WK
     Route: 065
     Dates: start: 201805

REACTIONS (11)
  - Nasal congestion [Unknown]
  - Eyelid oedema [Unknown]
  - Visual impairment [Unknown]
  - Rhinorrhoea [Unknown]
  - Cough [Unknown]
  - Psoriasis [Not Recovered/Not Resolved]
  - Lip swelling [Unknown]
  - Swelling face [Unknown]
  - Dysphagia [Unknown]
  - Oropharyngeal pain [Unknown]
  - Dry eye [Unknown]

NARRATIVE: CASE EVENT DATE: 2018
